FAERS Safety Report 9716579 (Version 1)
Quarter: 2013Q4

REPORT INFORMATION
  Report Type: Spontaneous
  Country: US (occurrence: US)
  Receive Date: 20131127
  Receipt Date: 20131127
  Transmission Date: 20140711
  Serious: Yes (Hospitalization, Other)
  Sender: FDA-Public Use
  Company Number: US-RB-060132-13

PATIENT
  Age: 85 Year
  Sex: Male

DRUGS (2)
  1. MUCINEX FAST MAX DM MAX [Suspect]
     Indication: COUGH
     Dosage: DRUG STOPPED ON 13-NOV-2013
     Route: 048
     Dates: start: 20131112
  2. COUMADIN [Concomitant]
     Indication: PRODUCT USED FOR UNKNOWN INDICATION

REACTIONS (8)
  - Syncope [Recovered/Resolved]
  - Unresponsive to stimuli [Recovered/Resolved]
  - Blood pressure decreased [Recovered/Resolved]
  - International normalised ratio increased [Recovered/Resolved]
  - Cold sweat [Recovered/Resolved]
  - Hypersensitivity [Recovered/Resolved]
  - Rash generalised [Recovered/Resolved]
  - Dizziness [Recovered/Resolved]
